FAERS Safety Report 25681158 (Version 1)
Quarter: 2025Q3

REPORT INFORMATION
  Report Type: Spontaneous
  Country: US (occurrence: None)
  Receive Date: 20250814
  Receipt Date: 20250814
  Transmission Date: 20251020
  Serious: Yes (Hospitalization)
  Sender: FDA-CTU
  Company Number: None

PATIENT
  Sex: Female

DRUGS (11)
  1. YESINTEK [Suspect]
     Active Substance: USTEKINUMAB-KFCE
     Indication: Crohn^s disease
     Route: 058
     Dates: start: 20250409
  2. ALBUTEROL AER HFA [Concomitant]
  3. ALLOPURINOL [Concomitant]
     Active Substance: ALLOPURINOL
  4. ALPRAZOLAM TAB [Concomitant]
  5. AZATHIOPRINE TAB [Concomitant]
  6. GALGITRIOL GAP [Concomitant]
  7. CARVEDILOL [Concomitant]
     Active Substance: CARVEDILOL
  8. CARVEDILOL [Concomitant]
     Active Substance: CARVEDILOL
  9. CITALOPRAM TAB 10MG [Concomitant]
  10. CLONIDINE DIS 0.1/24HR [Concomitant]
  11. CLONIDINE DIS 0.2/24HR [Concomitant]

REACTIONS (2)
  - Infection [None]
  - Full blood count increased [None]
